FAERS Safety Report 7338019 (Version 12)
Quarter: 2014Q1

REPORT INFORMATION
  Report Type: Spontaneous
  Country: US (occurrence: US)
  Receive Date: 20100331
  Receipt Date: 20140311
  Transmission Date: 20141002
  Serious: Yes (Hospitalization)
  Sender: FDA-Public Use
  Company Number: US-BIOGENIDEC-2010BI009174

PATIENT
  Age: 22 Year
  Sex: Male
  Weight: 97 kg

DRUGS (4)
  1. TYSABRI [Suspect]
     Indication: MULTIPLE SCLEROSIS
     Route: 042
     Dates: start: 20061003, end: 20100112
  2. CELEXA [Concomitant]
     Indication: DEPRESSION
     Route: 050
  3. RISPERDAL [Concomitant]
     Indication: IMPULSIVE BEHAVIOUR
     Route: 048
  4. RISPERDAL [Concomitant]
     Indication: PARANOIA
     Route: 048

REACTIONS (7)
  - Progressive multifocal leukoencephalopathy [Not Recovered/Not Resolved]
  - Immune reconstitution inflammatory syndrome [Recovered/Resolved]
  - HIV test positive [Unknown]
  - Pneumonia aspiration [Recovered/Resolved]
  - Pulmonary oedema [Recovered/Resolved]
  - Clostridium difficile colitis [Not Recovered/Not Resolved]
  - Alcoholism [Unknown]
